FAERS Safety Report 12269152 (Version 1)
Quarter: 2016Q2

REPORT INFORMATION
  Report Type: Spontaneous
  Country: FR (occurrence: FR)
  Receive Date: 20160414
  Receipt Date: 20160414
  Transmission Date: 20160815
  Serious: Yes (Hospitalization)
  Sender: FDA-Public Use
  Company Number: FR-ELI_LILLY_AND_COMPANY-FR201604001152

PATIENT
  Age: 59 Year
  Sex: Male

DRUGS (1)
  1. ALIMTA [Suspect]
     Active Substance: PEMETREXED DISODIUM
     Indication: LUNG ADENOCARCINOMA
     Dosage: 927.9 MG, UNKNOWN
     Route: 042
     Dates: start: 20160218, end: 20160220

REACTIONS (3)
  - Psoriasis [Unknown]
  - Skin exfoliation [Unknown]
  - Skin necrosis [Unknown]

NARRATIVE: CASE EVENT DATE: 20160220
